FAERS Safety Report 9664528 (Version 2)
Quarter: 2013Q4

REPORT INFORMATION
  Report Type: Report from Study
  Country: US (occurrence: US)
  Receive Date: 20131101
  Receipt Date: 20131108
  Transmission Date: 20140711
  Serious: Yes (Other)
  Sender: FDA-Public Use
  Company Number: PHEH2013US022875

PATIENT
  Age: 54 Year
  Sex: Female

DRUGS (18)
  1. GILENYA [Suspect]
     Indication: MULTIPLE SCLEROSIS
     Dosage: 0.5 MG, QHS
     Route: 048
     Dates: start: 20111103
  2. ADDERALL XR [Concomitant]
  3. LYRICA [Concomitant]
  4. DICYCLOMINE [Concomitant]
  5. AMANTADINE [Concomitant]
  6. CENTRUM [Concomitant]
  7. SINGULAIR [Concomitant]
  8. AMLODIPINE BESYLATE [Concomitant]
  9. CLONAZEPAM [Concomitant]
  10. NASONEX [Concomitant]
  11. TRAMADOL HCL [Concomitant]
  12. PROMAZIN//PROMETHAZINE [Concomitant]
  13. LISINOPRIL HCTZ [Concomitant]
  14. ASACOL [Concomitant]
  15. BACLOFEN [Concomitant]
  16. ADVAIR DISKUS [Concomitant]
  17. OMEPRAZOLE [Concomitant]
  18. VITAMIN B1 [Concomitant]

REACTIONS (3)
  - Cataract [Unknown]
  - Blindness [Unknown]
  - Vision blurred [Unknown]
